FAERS Safety Report 10642597 (Version 1)
Quarter: 2014Q4

REPORT INFORMATION
  Report Type: Spontaneous
  Country: US (occurrence: None)
  Receive Date: 20141209
  Receipt Date: 20141209
  Transmission Date: 20150529
  Serious: Yes (Disabling)
  Sender: FDA-Public Use
  Company Number: None

PATIENT
  Age: 70 Year
  Sex: Female
  Weight: 99.79 kg

DRUGS (1)
  1. NORVASC [Suspect]
     Active Substance: AMLODIPINE BESYLATE
     Indication: HYPERTENSION
     Route: 048
     Dates: start: 20141027, end: 20141101

REACTIONS (5)
  - Burning sensation [None]
  - Unevaluable event [None]
  - Abasia [None]
  - Pain in extremity [None]
  - No therapeutic response [None]

NARRATIVE: CASE EVENT DATE: 20141027
